FAERS Safety Report 22053793 (Version 3)
Quarter: 2023Q1

REPORT INFORMATION
  Report Type: Report from Study
  Country: AR (occurrence: None)
  Receive Date: 20230302
  Receipt Date: 20230329
  Transmission Date: 20230417
  Serious: Yes (Hospitalization, Other)
  Sender: FDA-Public Use
  Company Number: AR-Merck Healthcare KGaA-9386912

PATIENT
  Age: 9 Year
  Sex: Male

DRUGS (1)
  1. SAIZEN [Suspect]
     Active Substance: SOMATROPIN
     Indication: Growth hormone deficiency
     Route: 030
     Dates: start: 20190624, end: 20230227

REACTIONS (6)
  - Muscle rigidity [Unknown]
  - Escherichia urinary tract infection [Unknown]
  - Spinal pain [Recovering/Resolving]
  - Herpes simplex test positive [Unknown]
  - CSF virus identified [Unknown]
  - Headache [Recovering/Resolving]

NARRATIVE: CASE EVENT DATE: 20230227
